FAERS Safety Report 17025179 (Version 1)
Quarter: 2019Q4

REPORT INFORMATION
  Report Type: Spontaneous
  Country: US (occurrence: US)
  Receive Date: 20191113
  Receipt Date: 20191113
  Transmission Date: 20200122
  Serious: Yes (Other)
  Sender: FDA-Public Use
  Company Number: US-BECTON DICKINSON-2019BDN00401

PATIENT

DRUGS (3)
  1. BIOPATCH DRESSING (W/ CHG) [Suspect]
     Active Substance: CHLORHEXIDINE GLUCONATE
     Dosage: 1^ DISK, 4 MM OPENING
  2. CHLORAPREP [Suspect]
     Active Substance: CHLORHEXIDINE GLUCONATE\ISOPROPYL ALCOHOL
     Indication: INFECTION PROPHYLAXIS
     Route: 061
  3. DOT POWERGLIDE PRO 18G 10CM RT [DEVICE] [Suspect]
     Active Substance: DEVICE

REACTIONS (2)
  - Foreign body [Not Recovered/Not Resolved]
  - Complication of device insertion [Not Recovered/Not Resolved]
